FAERS Safety Report 22150756 (Version 3)
Quarter: 2023Q2

REPORT INFORMATION
  Report Type: Spontaneous
  Country: GB (occurrence: None)
  Receive Date: 20230329
  Receipt Date: 20230420
  Transmission Date: 20230722
  Serious: Yes (Hospitalization, Other)
  Sender: FDA-Public Use
  Company Number: GB-Orion Corporation ORION PHARMA-TREX2023-0099

PATIENT
  Age: 65 Year

DRUGS (1)
  1. METHOTREXATE [Suspect]
     Active Substance: METHOTREXATE
     Indication: Rheumatoid arthritis

REACTIONS (4)
  - Mouth ulceration [Recovering/Resolving]
  - Renal impairment [Unknown]
  - Ulcer [Unknown]
  - Toxicity to various agents [Unknown]
